FAERS Safety Report 10173074 (Version 1)
Quarter: 2014Q2

REPORT INFORMATION
  Report Type: Spontaneous
  Country: US (occurrence: None)
  Receive Date: 20140429
  Receipt Date: 20140429
  Transmission Date: 20141212
  Serious: Yes (Other)
  Sender: FDA-Public Use
  Company Number: US-BIOTEST-T 145/4

PATIENT
  Age: 25 Year
  Sex: Female

DRUGS (1)
  1. BIVIGAM [Suspect]
     Indication: HYPOGAMMAGLOBULINAEMIA
     Route: 041

REACTIONS (1)
  - Hepatitis B antibody positive [None]
